FAERS Safety Report 9713934 (Version 1)
Quarter: 2013Q4

REPORT INFORMATION
  Report Type: Spontaneous
  Country: US (occurrence: US)
  Receive Date: 20131126
  Receipt Date: 20131126
  Transmission Date: 20140711
  Serious: No
  Sender: FDA-Public Use
  Company Number: US-GILEAD-2008-0018154

PATIENT
  Age: 28 Year
  Sex: Female
  Weight: 74.84 kg

DRUGS (7)
  1. LETAIRIS [Suspect]
     Indication: PULMONARY ARTERIAL HYPERTENSION
     Route: 048
     Dates: start: 20071008
  2. RANITIDINE [Concomitant]
     Route: 048
  3. SPIRONOLACTONE [Concomitant]
     Route: 048
  4. TOPROL XL [Concomitant]
     Route: 048
  5. CITALOPRAM [Concomitant]
     Route: 048
  6. TYLENOL [Concomitant]
     Route: 048
  7. REVATIO [Concomitant]
     Route: 048

REACTIONS (1)
  - Nasal congestion [None]
